FAERS Safety Report 8201848-8 (Version None)
Quarter: 2012Q1

REPORT INFORMATION
  Report Type: 
  Country: None (occurrence: None)
  Receive Date: 20120308
  Receipt Date: 20120227
  Transmission Date: 20120608
  Serious: Yes (Other)
  Sender: FDA-Public Use
  Company Number: AUR-APL-2012-00489

PATIENT
  Age: 74 Year
  Sex: Female

DRUGS (1)
  1. METFORMIN HCL [Suspect]
     Indication: PRODUCT USED FOR UNKNOWN INDICATION
     Dosage: (1500 MG, 1 D, UNKNOWN)

REACTIONS (5)
  - RENAL IMPAIRMENT [None]
  - AMYLASE INCREASED [None]
  - LACTIC ACIDOSIS [None]
  - CONTINUOUS HAEMODIAFILTRATION [None]
  - INTENTIONAL OVERDOSE [None]
